FAERS Safety Report 13006274 (Version 2)
Quarter: 2016Q4

REPORT INFORMATION
  Report Type: Spontaneous
  Country: JP (occurrence: JP)
  Receive Date: 20161207
  Receipt Date: 20161227
  Transmission Date: 20170207
  Serious: Yes (Hospitalization)
  Sender: FDA-Public Use
  Company Number: JP-GLAXOSMITHKLINE-JP2016JPN174650

PATIENT
  Age: 79 Year
  Sex: Female
  Weight: 60 kg

DRUGS (19)
  1. REQUIP [Suspect]
     Active Substance: ROPINIROLE HYDROCHLORIDE
     Dosage: 8 MG, QD
     Route: 048
     Dates: start: 20161012
  2. REQUIP [Suspect]
     Active Substance: ROPINIROLE HYDROCHLORIDE
     Dosage: 6 MG, QD
     Route: 048
     Dates: start: 20161026
  3. MOHRUS TAPE L [Concomitant]
     Active Substance: KETOPROFEN
     Indication: INTERVERTEBRAL DISC DISORDER
     Dosage: UNK, PRN
     Dates: start: 20130518
  4. HYALEIN OPHTHALMIC SOLUTION [Concomitant]
     Indication: DRY EYE
     Dosage: UNK, PRN
     Dates: start: 20150105
  5. REQUIP [Suspect]
     Active Substance: ROPINIROLE HYDROCHLORIDE
     Dosage: 6 MG, QD
     Route: 048
     Dates: start: 20160928
  6. NEODOPASOL [Concomitant]
     Active Substance: BENSERAZIDE HYDROCHLORIDE\LEVODOPA
     Indication: PARKINSON^S DISEASE
     Dosage: 350 MG, 1D
     Dates: start: 20150304
  7. NAUZELIN OD TABLETS [Concomitant]
     Dosage: 20 MG, 1D
     Dates: start: 20100814
  8. SENNA [Concomitant]
     Active Substance: SENNA LEAF\SENNOSIDES\SENNOSIDES A AND B
     Indication: CONSTIPATION
     Dosage: 160 MG, PRN
     Dates: start: 201411
  9. REQUIP [Suspect]
     Active Substance: ROPINIROLE HYDROCHLORIDE
     Indication: PARKINSON^S DISEASE
     Dosage: 2 MG, QD
     Route: 048
     Dates: start: 20160914
  10. BETAHISTINE MESILATE [Concomitant]
     Active Substance: BETAHISTINE MESILATE
     Indication: DIZZINESS
     Dosage: 36 MG, 1D
     Dates: start: 20160930
  11. MAGMITT [Concomitant]
     Active Substance: MAGNESIUM OXIDE
     Indication: CONSTIPATION
     Dosage: 750 MG, 1D
     Dates: start: 200706
  12. NEODOPASOL [Concomitant]
     Active Substance: BENSERAZIDE HYDROCHLORIDE\LEVODOPA
     Dosage: UNK
     Dates: start: 20161121
  13. AMLODIPINE [Concomitant]
     Active Substance: AMLODIPINE BESYLATE
     Indication: HYPERTENSION
     Dosage: 2.5 MG, 1D
     Dates: start: 20140310
  14. ONEALFA [Concomitant]
     Active Substance: ALFACALCIDOL
     Indication: OSTEOPOROSIS
     Dosage: 1 ?G, 1D
     Dates: start: 20160930
  15. REQUIP [Suspect]
     Active Substance: ROPINIROLE HYDROCHLORIDE
     Dosage: 4 MG, QD
     Route: 048
     Dates: start: 20160921
  16. REQUIP [Suspect]
     Active Substance: ROPINIROLE HYDROCHLORIDE
     Dosage: 2 MG, QD
     Route: 048
     Dates: start: 20161109, end: 20161111
  17. BLOPRESS [Concomitant]
     Active Substance: CANDESARTAN CILEXETIL
     Indication: HYPERTENSION
     Dosage: 8 MG, 1D
     Dates: start: 200411
  18. TRERIEF [Concomitant]
     Active Substance: ZONISAMIDE
     Indication: PARKINSON^S DISEASE
     Dosage: 25 MG, 1D
     Dates: start: 20151025
  19. LANSOPRAZOLE-OD TABLETS [Concomitant]
     Indication: PROPHYLAXIS AGAINST GASTROINTESTINAL ULCER
     Dosage: 15 MG, 1D
     Dates: start: 20120513

REACTIONS (11)
  - Middle insomnia [Unknown]
  - Insomnia [Recovering/Resolving]
  - Muscle rigidity [Unknown]
  - Gait disturbance [Unknown]
  - Affect lability [Recovering/Resolving]
  - Hallucination, visual [Recovered/Resolved]
  - Bradykinesia [Unknown]
  - Delusion [Recovered/Resolved]
  - Restlessness [Recovering/Resolving]
  - Anxiety [Recovering/Resolving]
  - Drug effect decreased [Unknown]

NARRATIVE: CASE EVENT DATE: 20161012
